FAERS Safety Report 18968180 (Version 1)
Quarter: 2021Q1

REPORT INFORMATION
  Report Type: Spontaneous
  Country: US (occurrence: US)
  Receive Date: 20210304
  Receipt Date: 20210304
  Transmission Date: 20210420
  Serious: No
  Sender: FDA-Public Use
  Company Number: US-TAKEDA-2021TUS011936

PATIENT

DRUGS (2)
  1. LIALDA [Suspect]
     Active Substance: MESALAMINE
     Dosage: 1.2 GRAM, BID
     Route: 065
  2. LIALDA [Suspect]
     Active Substance: MESALAMINE
     Indication: COLITIS ULCERATIVE
     Dosage: 2.4 GRAM, BID
     Route: 065

REACTIONS (4)
  - Discomfort [Recovered/Resolved]
  - Drug ineffective [Unknown]
  - Alopecia [Not Recovered/Not Resolved]
  - Flatulence [Recovered/Resolved]
